FAERS Safety Report 15233186 (Version 1)
Quarter: 2018Q3

REPORT INFORMATION
  Report Type: Spontaneous
  Country: US (occurrence: US)
  Receive Date: 20180709
  Receipt Date: 20180709
  Transmission Date: 20181010
  Serious: Yes (Disabling)
  Sender: FDA-Public Use
  Company Number: None

PATIENT
  Sex: Female
  Weight: 8.1 kg

DRUGS (2)
  1. AQUAMEPHYTON [Suspect]
     Active Substance: PHYTONADIONE
     Dates: start: 20161116
  2. AQUAMEPHYTON GENERIC [Suspect]
     Active Substance: PHYTONADIONE

REACTIONS (2)
  - Psychomotor skills impaired [None]
  - Speech disorder developmental [None]
